FAERS Safety Report 8054441-4 (Version None)
Quarter: 2012Q1

REPORT INFORMATION
  Report Type: 
  Country: None (occurrence: None)
  Receive Date: 20120118
  Receipt Date: 20120111
  Transmission Date: 20120608
  Serious: Yes (Other)
  Sender: FDA-Public Use
  Company Number: US-ASTRAZENECA-2012SE02546

PATIENT
  Age: 64 Year
  Sex: Female

DRUGS (1)
  1. SEROQUEL [Suspect]
     Route: 048

REACTIONS (4)
  - VISION BLURRED [None]
  - AMNESIA [None]
  - LOSS OF CONSCIOUSNESS [None]
  - HEAD INJURY [None]
